FAERS Safety Report 17868643 (Version 2)
Quarter: 2023Q4

REPORT INFORMATION
  Report Type: Report from Study
  Country: AU (occurrence: AU)
  Receive Date: 20200606
  Receipt Date: 20231005
  Transmission Date: 20240110
  Serious: Yes (Other)
  Sender: FDA-Public Use
  Company Number: AU-NOVARTISPH-NVSC2020AU156957

PATIENT
  Age: 1 Year
  Sex: Female
  Weight: 11.1 kg

DRUGS (4)
  1. ZOLGENSMA [Suspect]
     Active Substance: ONASEMNOGENE ABEPARVOVEC-XIOI
     Indication: Spinal muscular atrophy
     Dosage: 63.3 ML, ONCE/SINGLE
     Route: 042
     Dates: start: 20200526
  2. PREDNISOLONE [Concomitant]
     Active Substance: PREDNISOLONE
     Indication: Prophylaxis
     Dosage: 11 MG, QD
     Route: 065
     Dates: start: 20200525
  3. LOSEC [Concomitant]
     Active Substance: OMEPRAZOLE
     Indication: Steroid therapy
     Dosage: 10 MG, QD
     Route: 065
     Dates: start: 20200525, end: 20200602
  4. OSMOLAX [Concomitant]
     Indication: Constipation
     Dosage: UNK
     Route: 065
     Dates: end: 20200602

REACTIONS (12)
  - Thrombocytopenia [Not Recovered/Not Resolved]
  - Hypertransaminasaemia [Not Recovered/Not Resolved]
  - Blood urea decreased [Unknown]
  - Troponin T increased [Unknown]
  - Haematocrit increased [Unknown]
  - Monocyte count increased [Unknown]
  - Activated partial thromboplastin time shortened [Unknown]
  - Lymphocyte count increased [Unknown]
  - Basophil count increased [Unknown]
  - Lymphocyte count decreased [Unknown]
  - Mean cell haemoglobin concentration decreased [Unknown]
  - Mean platelet volume decreased [Unknown]

NARRATIVE: CASE EVENT DATE: 20200526
